FAERS Safety Report 7931128-7 (Version None)
Quarter: 2011Q4

REPORT INFORMATION
  Report Type: 
  Country: None (occurrence: None)
  Receive Date: 20111118
  Receipt Date: 20111118
  Transmission Date: 20120403
  Serious: No
  Sender: FDA-Public Use
  Company Number: None

PATIENT
  Age: 64 Year
  Sex: Female

DRUGS (1)
  1. LEXISCAN [Suspect]

REACTIONS (4)
  - CARDIAC DISORDER [None]
  - MUSCLE SPASMS [None]
  - FEELING ABNORMAL [None]
  - ATRIAL FLUTTER [None]
